FAERS Safety Report 9740688 (Version 1)
Quarter: 2013Q4

REPORT INFORMATION
  Report Type: Spontaneous
  Country: US (occurrence: US)
  Receive Date: 20131209
  Receipt Date: 20131209
  Transmission Date: 20140711
  Serious: No
  Sender: FDA-Public Use
  Company Number: US-BIOGENIDEC-2013BI099279

PATIENT
  Age: 50 Year
  Sex: Female

DRUGS (8)
  1. TECFIDERA [Suspect]
     Indication: MULTIPLE SCLEROSIS
     Route: 048
     Dates: start: 20130911
  2. BYSTOLIC [Concomitant]
  3. DICLOFENAC SODIUM [Concomitant]
  4. ESCITALOPRAM OXALATE [Concomitant]
  5. LOSARTAN [Concomitant]
  6. POTASSIUM- HCTZ [Concomitant]
  7. SIMVASTATIN [Concomitant]
  8. TYLENOL [Concomitant]

REACTIONS (1)
  - Pruritus [Unknown]
